FAERS Safety Report 9220580 (Version 2)
Quarter: 2013Q2

REPORT INFORMATION
  Report Type: Spontaneous
  Country: US (occurrence: US)
  Receive Date: 20130409
  Receipt Date: 20130501
  Transmission Date: 20140414
  Serious: No
  Sender: FDA-Public Use
  Company Number: US-TEVA-396671USA

PATIENT
  Age: 40 Year
  Sex: Male

DRUGS (1)
  1. QVAR [Suspect]
     Dates: start: 2011

REACTIONS (1)
  - Drug effect decreased [Unknown]
